FAERS Safety Report 4797533-5 (Version None)
Quarter: 2005Q3

REPORT INFORMATION
  Report Type: 
  Country: None (occurrence: None)
  Receive Date: 20050929
  Receipt Date: 20050707
  Transmission Date: 20060218
  Serious: No
  Sender: FDA-Public Use
  Company Number: 05P-163-0305054

PATIENT
  Age: 40 Year
  Sex: Female
  Weight: 107 kg

DRUGS (6)
  1. HUMIRA [Suspect]
     Indication: SPONDYLOLYSIS
     Dosage: 40 MG, 1 IN 2 WK, SUBCUTANEOUS
     Route: 058
     Dates: start: 20050531, end: 20050615
  2. SULFASALAZINE [Concomitant]
  3. HYDROXYCHLOROQUINE PHOSPHATE [Concomitant]
  4. MELOXICAM [Concomitant]
  5. PILOCARPINE HYDROCHLORIDE [Concomitant]
  6. TRANZADONE [Concomitant]

REACTIONS (1)
  - RASH GENERALISED [None]
